FAERS Safety Report 22114044 (Version 1)
Quarter: 2023Q1

REPORT INFORMATION
  Report Type: Spontaneous
  Country: US (occurrence: US)
  Receive Date: 20230320
  Receipt Date: 20230320
  Transmission Date: 20230418
  Serious: No
  Sender: FDA-Public Use
  Company Number: US-SA-SAC20230316000816

PATIENT
  Age: 15 Month
  Sex: Male

DRUGS (1)
  1. IMIGLUCERASE [Suspect]
     Active Substance: IMIGLUCERASE
     Indication: Gaucher^s disease type II
     Dosage: UNK UNK, QOW
     Route: 065
     Dates: start: 2022

REACTIONS (2)
  - Splenomegaly [Recovering/Resolving]
  - Hepatomegaly [Recovering/Resolving]
